FAERS Safety Report 15061466 (Version 2)
Quarter: 2018Q2

REPORT INFORMATION
  Report Type: Spontaneous
  Country: US (occurrence: US)
  Receive Date: 20180625
  Receipt Date: 20180629
  Transmission Date: 20180711
  Serious: Yes (Hospitalization, Other)
  Sender: FDA-Public Use
  Company Number: US-UNITED THERAPEUTICS-UNT-2018-009090

PATIENT
  Sex: Female
  Weight: 72.56 kg

DRUGS (3)
  1. TYVASO [Suspect]
     Active Substance: TREPROSTINIL
     Indication: PULMONARY ARTERIAL HYPERTENSION
     Dosage: 18-54 MICROGRAMS, QID
     Dates: start: 20180502
  2. LETAIRIS [Concomitant]
     Active Substance: AMBRISENTAN
     Indication: PRODUCT USED FOR UNKNOWN INDICATION
     Dosage: UNK
     Route: 065
     Dates: start: 201804
  3. TYVASO [Suspect]
     Active Substance: TREPROSTINIL
     Indication: PULMONARY HYPERTENSION

REACTIONS (3)
  - Acute kidney injury [Unknown]
  - Haematochezia [Unknown]
  - Tooth injury [Unknown]

NARRATIVE: CASE EVENT DATE: 2018
